FAERS Safety Report 18588630 (Version 2)
Quarter: 2021Q1

REPORT INFORMATION
  Report Type: Spontaneous
  Country: GR (occurrence: GR)
  Receive Date: 20201208
  Receipt Date: 20210218
  Transmission Date: 20210419
  Serious: Yes (Hospitalization)
  Sender: FDA-Public Use
  Company Number: GR-BAUSCH-BL-2020-034677

PATIENT
  Age: 72 Year
  Sex: Female

DRUGS (3)
  1. ATROPINE. [Suspect]
     Active Substance: ATROPINE
     Indication: BRADYCARDIA
     Dosage: 3 AMPOULES OF ATROPINE 1 MG/ML WERE ADMINISTERED CONSECUTIVELY
     Route: 042
  2. ATROPINE. [Suspect]
     Active Substance: ATROPINE
     Indication: ELECTROCARDIOGRAM ABNORMAL
  3. HYDROCHLORIC PROPAFENONE [Concomitant]
     Indication: ATRIAL FIBRILLATION

REACTIONS (8)
  - Blindness [Recovered/Resolved]
  - Confusional state [Recovered/Resolved]
  - Nervousness [Recovered/Resolved]
  - Amnesia [Recovered/Resolved]
  - Aphasia [Recovered/Resolved]
  - Toxicity to various agents [Unknown]
  - Encephalopathy [Recovered/Resolved]
  - Mydriasis [Recovered/Resolved]
